FAERS Safety Report 6262544-X (Version None)
Quarter: 2009Q3

REPORT INFORMATION
  Report Type: 
  Country: None (occurrence: None)
  Receive Date: 20090709
  Receipt Date: 20090629
  Transmission Date: 20100115
  Serious: Yes (Death)
  Sender: FDA-Public Use
  Company Number: US-TYCO HEALTHCARE/MALLINCKRODT-T200901306

PATIENT
  Sex: Male

DRUGS (6)
  1. OXYCODONE HCL AND ACETAMINOPHEN [Suspect]
     Indication: DRUG USE FOR UNKNOWN INDICATION
     Dosage: 2 TABS, TID
     Dates: start: 20080901
  2. NAPROXEN [Concomitant]
  3. TERAZOSIN HCL [Concomitant]
  4. METOPROLOL [Concomitant]
  5. SERTRALINE [Concomitant]
  6. CLONIDINE [Concomitant]

REACTIONS (2)
  - DRUG TOXICITY [None]
  - HYPERTENSIVE HEART DISEASE [None]
